FAERS Safety Report 7284570-4 (Version None)
Quarter: 2011Q1

REPORT INFORMATION
  Report Type: 
  Country: None (occurrence: None)
  Receive Date: 20110210
  Receipt Date: 20110201
  Transmission Date: 20110831
  Serious: Yes (Hospitalization)
  Sender: FDA-Public Use
  Company Number: 2008BI017213

PATIENT
  Age: 51 Year
  Sex: Female
  Weight: 96 kg

DRUGS (3)
  1. AVONEX [Suspect]
     Route: 030
     Dates: start: 20021210
  2. AVONEX [Suspect]
     Indication: MULTIPLE SCLEROSIS
     Route: 030
  3. BETASERON [Concomitant]
     Indication: MULTIPLE SCLEROSIS
     Dates: end: 20021214

REACTIONS (1)
  - PELVIC ADHESIONS [None]
